FAERS Safety Report 6694290-2 (Version None)
Quarter: 2010Q2

REPORT INFORMATION
  Report Type: 
  Country: None (occurrence: None)
  Receive Date: 20100421
  Receipt Date: 20100408
  Transmission Date: 20101027
  Serious: Yes (Hospitalization)
  Sender: FDA-Public Use
  Company Number: TPA2010A02008

PATIENT
  Age: 71 Year
  Sex: Male
  Weight: 102.0593 kg

DRUGS (5)
  1. ULORIC [Suspect]
     Indication: BLOOD URIC ACID INCREASED
     Dosage: 40 MG, 1 IN 1 D, PER ORAL
     Route: 048
     Dates: start: 20100208, end: 20100308
  2. METOPROLOL (METOPROLOL) [Concomitant]
  3. LISINOPRIL [Concomitant]
  4. DILTIAZEM [Concomitant]
  5. ASPIRIN [Concomitant]

REACTIONS (2)
  - GOUT [None]
  - PULMONARY EMBOLISM [None]
